FAERS Safety Report 11074994 (Version 1)
Quarter: 2020Q3

REPORT INFORMATION
  Report Type: Report from Study
  Country: UA (occurrence: UA)
  Receive Date: 20150429
  Receipt Date: 20150429
  Transmission Date: 20201104
  Serious: Yes (Hospitalization)
  Sender: FDA-Public Use
  Company Number: UA-JNJFOC-20130705131

PATIENT
  Age: 39 Year
  Sex: Female
  Weight: 71.2 kg

DRUGS (14)
  1. PANCREATINUM [Concomitant]
     Indication: PANCREATITIS CHRONIC
     Route: 048
  2. TAVEGIL [Concomitant]
     Active Substance: CLEMASTINE FUMARATE
     Route: 042
  3. MICROGYNON [Concomitant]
     Active Substance: ETHINYL ESTRADIOL\LEVONORGESTREL ACETATE
     Indication: PREGNANCY
     Route: 048
  4. IBRUTINIB [Suspect]
     Active Substance: IBRUTINIB
     Indication: CHRONIC LYMPHOCYTIC LEUKAEMIA
     Route: 048
     Dates: start: 20130712
  5. PARACETAMOLUM [Concomitant]
     Route: 048
  6. IBRUTINIB [Suspect]
     Active Substance: IBRUTINIB
     Indication: CHRONIC LYMPHOCYTIC LEUKAEMIA
     Route: 048
     Dates: start: 20130424, end: 20130704
  7. PANCREATINUM [Concomitant]
     Indication: PANCREATITIS CHRONIC
     Route: 048
  8. DEXAMETHASONE. [Concomitant]
     Active Substance: DEXAMETHASONE
     Route: 042
  9. BENDAMUSTINE HYDROCHLORIDE. [Suspect]
     Active Substance: BENDAMUSTINE HYDROCHLORIDE
     Indication: CHRONIC LYMPHOCYTIC LEUKAEMIA
     Dosage: 2 DAYS IN FOUR WEEKS
     Route: 042
     Dates: start: 20130424
  10. RITUXIMAB. [Suspect]
     Active Substance: RITUXIMAB
     Indication: CHRONIC LYMPHOCYTIC LEUKAEMIA
     Route: 042
     Dates: start: 20130423
  11. FERROUS SULFATE. [Concomitant]
     Active Substance: FERROUS SULFATE
     Indication: ANAEMIA
     Route: 048
  12. ALLOPURINOLUM [Concomitant]
     Indication: TUMOUR LYSIS SYNDROME
     Route: 048
  13. PRIFINIUM BROMIDE [Concomitant]
     Active Substance: PRIFINIUM BROMIDE
     Indication: PANCREATITIS CHRONIC
     Route: 030
  14. SODIUM CHLORIDE. [Concomitant]
     Active Substance: SODIUM CHLORIDE
     Route: 042

REACTIONS (1)
  - Uterine haemorrhage [Recovered/Resolved]

NARRATIVE: CASE EVENT DATE: 20130705
